FAERS Safety Report 20442637 (Version 3)
Quarter: 2022Q2

REPORT INFORMATION
  Report Type: Report from Study
  Country: US (occurrence: US)
  Receive Date: 20220208
  Receipt Date: 20220411
  Transmission Date: 20220721
  Serious: Yes (Hospitalization, Other)
  Sender: FDA-Public Use
  Company Number: US-TAKEDA-2022TUS007719

PATIENT
  Age: 41 Year
  Sex: Female

DRUGS (1)
  1. LANADELUMAB [Suspect]
     Active Substance: LANADELUMAB
     Indication: Prophylaxis
     Dosage: 300 MILLIGRAM, Q2WEEKS
     Route: 058

REACTIONS (4)
  - Hereditary angioedema [Recovered/Resolved]
  - COVID-19 [Unknown]
  - Impaired gastric emptying [Unknown]
  - Malaise [Unknown]

NARRATIVE: CASE EVENT DATE: 20220112
